FAERS Safety Report 7166837-3 (Version None)
Quarter: 2010Q4

REPORT INFORMATION
  Report Type: 
  Country: None (occurrence: None)
  Receive Date: 20101203
  Receipt Date: 20101117
  Transmission Date: 20110411
  Serious: Yes (Other)
  Sender: FDA-Public Use
  Company Number: 2010SA070691

PATIENT
  Age: 82 Year
  Sex: Male

DRUGS (10)
  1. PLAVIX [Suspect]
     Indication: THROMBOSIS
     Dosage: 75 MILLIGRAM(S), DAILY, ORAL
     Route: 048
     Dates: start: 20050101, end: 20100201
  2. PLAVIX [Suspect]
     Indication: TRANSIENT ISCHAEMIC ATTACK
     Dosage: 75 MILLIGRAM(S), DAILY, ORAL
     Route: 048
     Dates: start: 20050101, end: 20100201
  3. PLAVIX [Suspect]
     Indication: THROMBOSIS
     Dosage: 75 MILLIGRAM(S), DAILY, ORAL
     Route: 048
     Dates: start: 20100101
  4. PLAVIX [Suspect]
     Indication: TRANSIENT ISCHAEMIC ATTACK
     Dosage: 75 MILLIGRAM(S), DAILY, ORAL
     Route: 048
     Dates: start: 20100101
  5. ASPIRIN [Concomitant]
  6. LIPITOR [Concomitant]
  7. COENZYME Q10 [Concomitant]
  8. COREG [Concomitant]
  9. ZETIA [Concomitant]
  10. ALLOPURINOL [Concomitant]

REACTIONS (2)
  - ATRIAL FIBRILLATION [None]
  - CORONARY ARTERIAL STENT INSERTION [None]
